FAERS Safety Report 10396908 (Version 2)
Quarter: 2014Q3

REPORT INFORMATION
  Report Type: Spontaneous
  Country: JP (occurrence: JP)
  Receive Date: 20140820
  Receipt Date: 20140904
  Transmission Date: 20150326
  Serious: Yes (Hospitalization, Other)
  Sender: FDA-Public Use
  Company Number: PHHY2014JP102309

PATIENT

DRUGS (1)
  1. VOLTAREN [Suspect]
     Active Substance: DICLOFENAC SODIUM
     Route: 048

REACTIONS (4)
  - Oral discomfort [Unknown]
  - Laryngeal squamous cell carcinoma [Unknown]
  - Toxic epidermal necrolysis [Unknown]
  - Skin lesion [Unknown]
